FAERS Safety Report 12299920 (Version 2)
Quarter: 2016Q2

REPORT INFORMATION
  Report Type: Spontaneous
  Country: US (occurrence: US)
  Receive Date: 20160425
  Receipt Date: 20160427
  Transmission Date: 20160815
  Serious: Yes (Other)
  Sender: FDA-Public Use
  Company Number: US-PFIZER INC-2016209266

PATIENT
  Age: 70 Year
  Sex: Female

DRUGS (1)
  1. IBRANCE [Suspect]
     Active Substance: PALBOCICLIB
     Indication: NEOPLASM MALIGNANT
     Dosage: 125 MG, UNK
     Dates: start: 20151230, end: 20160407

REACTIONS (5)
  - Ascites [Unknown]
  - Joint swelling [Unknown]
  - Pleural effusion [Unknown]
  - Neoplasm malignant [Unknown]
  - Disease progression [Unknown]

NARRATIVE: CASE EVENT DATE: 20160411
